FAERS Safety Report 20083007 (Version 1)
Quarter: 2021Q4

REPORT INFORMATION
  Report Type: Report from Study
  Country: US (occurrence: None)
  Receive Date: 20211117
  Receipt Date: 20211117
  Transmission Date: 20220304
  Serious: Yes (Other)
  Sender: FDA-Public Use
  Company Number: 2021A806134

PATIENT
  Age: 27144 Day
  Sex: Male

DRUGS (1)
  1. BRILINTA [Suspect]
     Active Substance: TICAGRELOR
     Route: 048
     Dates: start: 20211101, end: 20211104

REACTIONS (2)
  - Disturbance in attention [Unknown]
  - Disorientation [Unknown]

NARRATIVE: CASE EVENT DATE: 20211101
